FAERS Safety Report 8764517 (Version 3)
Quarter: 2012Q4

REPORT INFORMATION
  Report Type: Report from Study
  Country: JP (occurrence: JP)
  Receive Date: 20120912
  Receipt Date: 20121213
  Transmission Date: 20130627
  Serious: Yes (Hospitalization)
  Sender: FDA-Public Use
  Company Number: JP-B.I. PHARMACEUTICALS,INC./RIDGEFIELD-2012-BP-20896NB

PATIENT
  Age: 81 None
  Sex: Male
  Weight: 83 kg

DRUGS (15)
  1. PRAZAXA [Suspect]
     Indication: THROMBOSIS PROPHYLAXIS
     Dosage: 150 mg
     Route: 048
     Dates: start: 20120518, end: 20120724
  2. PRAZAXA [Suspect]
     Dosage: 150 mg
     Route: 048
     Dates: start: 20120901
  3. SELBEX [Concomitant]
     Indication: PROPHYLAXIS
     Dosage: 150 mg
     Route: 048
  4. CEROCRAL [Concomitant]
     Indication: CAROTID ARTERY STENOSIS
     Dosage: 60 mg
     Route: 048
     Dates: end: 201207
  5. RIBALL [Concomitant]
     Dosage: 100 mg
     Route: 048
     Dates: end: 201207
  6. ADALAT-CR [Concomitant]
     Dosage: 30 mg
     Route: 048
     Dates: end: 201207
  7. LENDORMIN [Concomitant]
     Indication: PROPHYLAXIS
     Dosage: 0.25 mg
     Route: 048
     Dates: end: 201207
  8. BLOPRESS [Concomitant]
     Dosage: 12 mg
     Route: 048
     Dates: end: 201207
  9. LIVALO [Concomitant]
     Dosage: 2 mg
     Route: 048
     Dates: end: 201207
  10. TENORMIN [Concomitant]
     Indication: ATRIAL FIBRILLATION
     Dosage: 100 mg
     Route: 048
     Dates: end: 201207
  11. FLUITRAN [Concomitant]
     Dosage: 2 mg
     Route: 048
     Dates: end: 201207
  12. ITOROL [Concomitant]
     Dosage: 40 mg
     Route: 048
     Dates: start: 200207
  13. ALLOZYM [Concomitant]
     Dosage: 100 mg
     Route: 048
     Dates: start: 201207
  14. CERCINE [Concomitant]
     Indication: PROPHYLAXIS
     Dosage: 2 mg
     Route: 048
     Dates: start: 201207
  15. OLMETEC [Concomitant]
     Dosage: 10 mg
     Route: 048
     Dates: start: 201207

REACTIONS (2)
  - Cardiac failure [Recovered/Resolved]
  - Pneumonia [Recovered/Resolved]
